FAERS Safety Report 14688225 (Version 2)
Quarter: 2018Q2

REPORT INFORMATION
  Report Type: Spontaneous
  Country: DK (occurrence: DK)
  Receive Date: 20180328
  Receipt Date: 20180430
  Transmission Date: 20180711
  Serious: Yes (Hospitalization, Other)
  Sender: FDA-Public Use
  Company Number: DK-TOLMAR, INC.-TOLG20180150

PATIENT
  Age: 66 Year
  Sex: Female

DRUGS (2)
  1. METRONIDAZOLE. [Suspect]
     Active Substance: METRONIDAZOLE
     Indication: INFECTIOUS PLEURAL EFFUSION
     Dosage: 500 MG
     Route: 048
  2. AMOXICILLIN AND CLAVULANIC ACID [Concomitant]
     Active Substance: AMOXICILLIN\CLAVULANIC ACID
     Indication: INFECTIOUS PLEURAL EFFUSION
     Dosage: UNKNOWN
     Route: 065

REACTIONS (14)
  - Paraesthesia [Recovered/Resolved with Sequelae]
  - Abdominal discomfort [Recovered/Resolved]
  - Nervous system disorder [Recovered/Resolved]
  - Sensory disturbance [Not Recovered/Not Resolved]
  - Polyneuropathy [Not Recovered/Not Resolved]
  - Cognitive disorder [Recovered/Resolved]
  - Loss of consciousness [Recovered/Resolved]
  - Myoclonus [Recovered/Resolved]
  - Seizure [Recovered/Resolved]
  - Nausea [Recovered/Resolved]
  - Ataxia [Recovered/Resolved]
  - Encephalopathy [Recovered/Resolved]
  - Malaise [Recovered/Resolved]
  - Partial seizures [Recovered/Resolved]
